FAERS Safety Report 8524118-7 (Version None)
Quarter: 2012Q3

REPORT INFORMATION
  Report Type: 
  Country: None (occurrence: None)
  Receive Date: 20120720
  Receipt Date: 20120718
  Transmission Date: 20120928
  Serious: Yes (Other)
  Sender: FDA-Public Use
  Company Number: CA-JNJFOC-20111100310

PATIENT
  Sex: Female
  Weight: 122.47 kg

DRUGS (3)
  1. METHOTREXATE [Concomitant]
     Route: 048
  2. SIMPONI [Suspect]
     Indication: RHEUMATOID ARTHRITIS
     Route: 058
     Dates: start: 20110506
  3. PREDNISONE [Concomitant]
     Route: 048

REACTIONS (2)
  - POST PROCEDURAL INFECTION [None]
  - LIMB OPERATION [None]
